FAERS Safety Report 8207102-2 (Version None)
Quarter: 2012Q1

REPORT INFORMATION
  Report Type: 
  Country: None (occurrence: None)
  Receive Date: 20120314
  Receipt Date: 20120305
  Transmission Date: 20120608
  Serious: Yes (Life-Threatening, Hospitalization, Other)
  Sender: FDA-Public Use
  Company Number: FR-NOVOPROD-343015

PATIENT
  Age: 55 Year
  Sex: Female
  Weight: 125 kg

DRUGS (7)
  1. ESCITALOPRAM OXALATE [Concomitant]
     Dosage: 10 MG, QD
     Route: 048
  2. DIAMICRON [Concomitant]
     Indication: DIABETES MELLITUS
     Dosage: 120 MG, QD
     Route: 048
     Dates: start: 20111107
  3. ALPRAZOLAM [Concomitant]
     Dosage: 0.5 MG, QD
     Route: 048
  4. ATORVASTATIN [Concomitant]
     Indication: DYSLIPIDAEMIA
     Dosage: 20 MG, QD
     Route: 048
     Dates: start: 20100101
  5. COVERAM [Concomitant]
     Dosage: 15 MG, QD
     Route: 048
     Dates: start: 20100101
  6. VICTOZA [Suspect]
     Indication: TYPE 2 DIABETES MELLITUS
     Dosage: 1.2 MG, QD
     Route: 048
     Dates: start: 20111107, end: 20111228
  7. METFORMIN HCL [Concomitant]
     Indication: DIABETES MELLITUS
     Dosage: 2100 MG, QD
     Route: 048
     Dates: start: 20100101

REACTIONS (1)
  - ACUTE LEUKAEMIA [None]
